FAERS Safety Report 13185347 (Version 6)
Quarter: 2017Q1

REPORT INFORMATION
  Report Type: Report from Study
  Country: US (occurrence: US)
  Receive Date: 20170203
  Receipt Date: 20170301
  Transmission Date: 20170428
  Serious: Yes (Hospitalization)
  Sender: FDA-Public Use
  Company Number: US-ROCHE-1886377

PATIENT
  Age: 78 Year
  Sex: Male
  Weight: 61.2 kg

DRUGS (8)
  1. PREDNISONE. [Suspect]
     Active Substance: PREDNISONE
     Indication: B-CELL LYMPHOMA
     Dosage: INITIAL DOSE AND ROUTE PER PROTOCOL?MOST RECENT DOSE PRIOR TO THE WHITE BLOOD CELL COUNT DECREASE WA
     Route: 048
     Dates: start: 20161021
  2. NEULASTA [Concomitant]
     Active Substance: PEGFILGRASTIM
     Route: 065
     Dates: start: 20170120
  3. CYCLOPHOSPHAMIDE. [Suspect]
     Active Substance: CYCLOPHOSPHAMIDE
     Indication: B-CELL LYMPHOMA
     Dosage: ROUTE AND UNIT PER PROTOCOL?THE MOST RECENT DOSE OF CYCLOPHOSPHAMIDE 1300 MG PRIOR TO THE WHITE BLOO
     Route: 042
     Dates: start: 20161021
  4. VINCRISTINE [Suspect]
     Active Substance: VINCRISTINE
     Indication: B-CELL LYMPHOMA
     Dosage: THE MOST RECENT DOSE OF VINCRISTINE 2 MG PRIOR TO THE WHITE BLOOD CELL COUNT DECREASE WAS ON 19/JAN/
     Route: 042
     Dates: start: 20161021
  5. RITUXIMAB [Suspect]
     Active Substance: RITUXIMAB
     Indication: B-CELL LYMPHOMA
     Dosage: ROUTE AND UNIT PER PROTOCOL?THE MOST RECENT DOSE OF RITUXIMAB 650 MG PRIOR TO THE WHITE BLOOD CELL C
     Route: 042
     Dates: start: 20161110
  6. VENETOCLAX [Suspect]
     Active Substance: VENETOCLAX
     Indication: B-CELL LYMPHOMA
     Dosage: ROUTE AND UNIT PER PROTOCOL?MOST RECENT DOSE OF VENETOCLAX (800 MG) PRIOR TO THE WHITE BLOOD CELL CO
     Route: 048
     Dates: start: 20161024
  7. DOXORUBICIN [Suspect]
     Active Substance: DOXORUBICIN
     Indication: B-CELL LYMPHOMA
     Dosage: THE MOST RECENT DOSE OF DOXORUBICIN 90 MG PRIOR TO THE WHITE BLOOD CELL COUNT DECREASE WAS ON 19/JAN
     Route: 042
     Dates: start: 20161021
  8. MOTRIN [Concomitant]
     Active Substance: IBUPROFEN
     Indication: PYREXIA
     Route: 065
     Dates: start: 20170127

REACTIONS (2)
  - White blood cell count decreased [Unknown]
  - Febrile neutropenia [Recovered/Resolved]

NARRATIVE: CASE EVENT DATE: 20170127
